FAERS Safety Report 24976925 (Version 1)
Quarter: 2025Q1

REPORT INFORMATION
  Report Type: Spontaneous
  Country: IN (occurrence: IN)
  Receive Date: 20250217
  Receipt Date: 20250217
  Transmission Date: 20250408
  Serious: Yes (Other)
  Sender: PFIZER
  Company Number: IN-PFIZER INC-2018023270

PATIENT
  Age: 68 Year
  Sex: Male
  Weight: 80.6 kg

DRUGS (13)
  1. SUTENT [Suspect]
     Active Substance: SUNITINIB MALATE
     Indication: Metastatic renal cell carcinoma
     Route: 048
     Dates: start: 20160705
  2. SUTENT [Suspect]
     Active Substance: SUNITINIB MALATE
     Route: 048
     Dates: start: 20200917
  3. SUTENT [Suspect]
     Active Substance: SUNITINIB MALATE
     Route: 048
  4. SUTENT [Suspect]
     Active Substance: SUNITINIB MALATE
     Route: 048
  5. SUTENT [Suspect]
     Active Substance: SUNITINIB MALATE
     Route: 048
     Dates: start: 20200722, end: 2020
  6. SUTENT [Suspect]
     Active Substance: SUNITINIB MALATE
     Route: 048
  7. SUTENT [Suspect]
     Active Substance: SUNITINIB MALATE
  8. SUTENT [Suspect]
     Active Substance: SUNITINIB MALATE
  9. SUTENT [Suspect]
     Active Substance: SUNITINIB MALATE
     Dosage: 12.5 MG (2-0-1), 2X/DAY
     Route: 048
  10. SUTENT [Suspect]
     Active Substance: SUNITINIB MALATE
     Route: 048
  11. PANSOL [Concomitant]
     Dosage: UNK, 1X/DAY
  12. ALPRAZOLAM [Concomitant]
     Active Substance: ALPRAZOLAM
     Dosage: 0.5 MG, 1X/DAY (0-0-1)
  13. BETONIN [Concomitant]

REACTIONS (14)
  - Blood pressure systolic increased [Unknown]
  - Cholelithiasis [Unknown]
  - Nausea [Unknown]
  - Vomiting [Unknown]
  - Weight decreased [Unknown]
  - White blood cell count decreased [Unknown]
  - Haemoglobin decreased [Unknown]
  - Heart rate decreased [Unknown]
  - Neoplasm progression [Unknown]
  - Blood creatine increased [Unknown]
  - Platelet count decreased [Unknown]
  - Back pain [Unknown]
  - Off label use [Unknown]
  - Product use issue [Unknown]

NARRATIVE: CASE EVENT DATE: 20230406
